FAERS Safety Report 10036431 (Version 1)
Quarter: 2014Q1

REPORT INFORMATION
  Report Type: Spontaneous
  Country: US (occurrence: US)
  Receive Date: 20140325
  Receipt Date: 20140325
  Transmission Date: 20141002
  Serious: No
  Sender: FDA-Public Use
  Company Number: US-009507513-1403USA011113

PATIENT
  Sex: Male

DRUGS (4)
  1. VICTRELIS [Suspect]
     Indication: HEPATITIS C
     Dosage: 800 MG, TID
     Route: 048
     Dates: end: 201310
  2. REBETOL [Suspect]
     Route: 048
  3. PEGASYS [Suspect]
  4. ALEVE [Concomitant]

REACTIONS (1)
  - Anaemia [Unknown]
